FAERS Safety Report 10552724 (Version 2)
Quarter: 2014Q4

REPORT INFORMATION
  Report Type: Spontaneous
  Country: US (occurrence: US)
  Receive Date: 20141029
  Receipt Date: 20141117
  Transmission Date: 20150529
  Serious: Yes (Hospitalization, Other)
  Sender: FDA-Public Use
  Company Number: US-GLAXOSMITHKLINE-US2014007706

PATIENT
  Age: 70 Year
  Sex: Female

DRUGS (3)
  1. THYROXINE [Concomitant]
     Active Substance: LEVOTHYROXINE
  2. CLONAZEPAM. [Concomitant]
     Active Substance: CLONAZEPAM
  3. LAMICTAL [Suspect]
     Active Substance: LAMOTRIGINE
     Indication: SEIZURE
     Dosage: 125 MG, BID
     Route: 048

REACTIONS (2)
  - Lung neoplasm surgery [Unknown]
  - Lung neoplasm malignant [Recovered/Resolved]

NARRATIVE: CASE EVENT DATE: 201409
